FAERS Safety Report 5981695-8 (Version None)
Quarter: 2008Q4

REPORT INFORMATION
  Report Type: 
  Country: None (occurrence: None)
  Receive Date: 20081202
  Receipt Date: 20081120
  Transmission Date: 20090506
  Serious: Yes (Hospitalization)
  Sender: FDA-Public Use
  Company Number: DSU-2008-01768

PATIENT
  Sex: Female
  Weight: 84.369 kg

DRUGS (5)
  1. EVOXAC [Suspect]
     Indication: DRY MOUTH
     Dosage: SEE IMAGE
     Route: 048
     Dates: start: 20030101, end: 20081014
  2. EVOXAC [Suspect]
     Indication: DRY MOUTH
     Dosage: SEE IMAGE
     Route: 048
     Dates: start: 20081101
  3. LYRICA [Suspect]
     Indication: NEUROPATHY PERIPHERAL
  4. TIRCOR (FENOFIBRATE) (FENOFIBRATE) [Concomitant]
  5. VITAMINS [Concomitant]

REACTIONS (7)
  - CUSHINGOID [None]
  - DRY EYE [None]
  - DRY THROAT [None]
  - EAR PAIN [None]
  - JOINT SWELLING [None]
  - LIP DRY [None]
  - SURGERY [None]
